FAERS Safety Report 5100056-7 (Version None)
Quarter: 2006Q3

REPORT INFORMATION
  Report Type: 
  Country: None (occurrence: None)
  Receive Date: 20060906
  Receipt Date: 20060811
  Transmission Date: 20061208
  Serious: Yes (Hospitalization)
  Sender: FDA-Public Use
  Company Number: 2006BH012713

PATIENT
  Age: 54 Year
  Sex: Female
  Weight: 86.3195 kg

DRUGS (1)
  1. DIANEAL [Suspect]
     Indication: RENAL FAILURE CHRONIC
     Dosage: 5 L; IP
     Route: 033

REACTIONS (3)
  - PERITONITIS [None]
  - STAPHYLOCOCCAL INFECTION [None]
  - WRONG TECHNIQUE IN DRUG USAGE PROCESS [None]
